FAERS Safety Report 8352714-9 (Version None)
Quarter: 2012Q2

REPORT INFORMATION
  Report Type: 
  Country: None (occurrence: None)
  Receive Date: 20120511
  Receipt Date: 20120507
  Transmission Date: 20120825
  Serious: Yes (Hospitalization)
  Sender: FDA-Public Use
  Company Number: NL-MEDIMMUNE-MEDI-0015538

PATIENT
  Sex: Female
  Weight: 5.46 kg

DRUGS (2)
  1. SYNAGIS [Suspect]
     Indication: HEART DISEASE CONGENITAL
     Route: 030
     Dates: start: 20111005, end: 20120328
  2. SYNAGIS [Suspect]
     Route: 030
     Dates: start: 20120423, end: 20120423

REACTIONS (3)
  - NASOPHARYNGITIS [None]
  - DYSPNOEA [None]
  - VIRAL INFECTION [None]
